FAERS Safety Report 20103421 (Version 1)
Quarter: 2021Q4

REPORT INFORMATION
  Report Type: Other
  Country: US (occurrence: US)
  Receive Date: 20211123
  Receipt Date: 20211123
  Transmission Date: 20220303
  Serious: No
  Sender: FDA-Public Use
  Company Number: US-UROVANT SCIENCES GMBH-202108-URV-000448

PATIENT
  Sex: Male

DRUGS (1)
  1. GEMTESA [Suspect]
     Active Substance: VIBEGRON
     Indication: Automatic bladder
     Dosage: UNK, QD
     Route: 048

REACTIONS (4)
  - Product availability issue [Unknown]
  - Inability to afford medication [Unknown]
  - Bladder irritation [Unknown]
  - Discomfort [Unknown]
